FAERS Safety Report 20607802 (Version 1)
Quarter: 2022Q1

REPORT INFORMATION
  Report Type: Spontaneous
  Country: US (occurrence: None)
  Receive Date: 20220317
  Receipt Date: 20220317
  Transmission Date: 20220423
  Serious: Yes (Other)
  Sender: FDA-Public Use
  Company Number: None

PATIENT
  Sex: Female

DRUGS (4)
  1. HUMIRA [Suspect]
     Active Substance: ADALIMUMAB
     Indication: Rheumatoid arthritis
     Dosage: 40MG/0.4ML? INJECT 40 MG UNDER THE SKIN (SUBCUTANEOUS INJECTION) EVERY 14 DAYS?
     Route: 058
     Dates: start: 20190912
  2. HUMIRA [Concomitant]
     Active Substance: ADALIMUMAB
  3. OTREXUP [Concomitant]
     Active Substance: METHOTREXATE
  4. OTREXUP [Concomitant]
     Active Substance: METHOTREXATE

REACTIONS (5)
  - Pain [None]
  - Condition aggravated [None]
  - Neoplasm malignant [None]
  - Therapy interrupted [None]
  - Loss of personal independence in daily activities [None]
